FAERS Safety Report 19759121 (Version 3)
Quarter: 2021Q4

REPORT INFORMATION
  Report Type: Report from Study
  Country: DE (occurrence: DE)
  Receive Date: 20210827
  Receipt Date: 20211122
  Transmission Date: 20220303
  Serious: Yes (Other)
  Sender: FDA-Public Use
  Company Number: DE-002147023-NVSC2020DE035485

PATIENT
  Sex: Female
  Weight: 62 kg

DRUGS (5)
  1. LETROZOLE [Suspect]
     Active Substance: LETROZOLE
     Indication: Breast cancer metastatic
     Dosage: 2.5 MILLIGRAM, QD
     Route: 048
     Dates: start: 20191011
  2. KISQALI [Suspect]
     Active Substance: RIBOCICLIB
     Indication: Breast cancer metastatic
     Dosage: 600 MILLIGRAM, QD (START 22-OCT-2019)
     Route: 048
     Dates: end: 20191028
  3. KISQALI [Suspect]
     Active Substance: RIBOCICLIB
     Dosage: 400 MILLIGRAM, QD (21 DAYS INTAKE, 7 DAYS PAUSE) START 07-FEB-2020
     Route: 048
     Dates: end: 20200513
  4. KISQALI [Suspect]
     Active Substance: RIBOCICLIB
     Dosage: 400 MILLIGRAM, QD (21 DAYS INTAKE, 7 DAYS PAUSE) START 25-JUN-2020
     Route: 048
     Dates: end: 20200702
  5. KISQALI [Suspect]
     Active Substance: RIBOCICLIB
     Dosage: 200 MILLIGRAM, QD (14 DAYS INTAKE, 7 DAYS PAUSE) START 14-JUL-2020
     Route: 048
     Dates: end: 20200731

REACTIONS (2)
  - Renal failure [Recovering/Resolving]
  - Aspartate aminotransferase increased [Not Recovered/Not Resolved]

NARRATIVE: CASE EVENT DATE: 20191011
